FAERS Safety Report 20735546 (Version 1)
Quarter: 2022Q2

REPORT INFORMATION
  Report Type: Report from Study
  Country: CA (occurrence: None)
  Receive Date: 20220421
  Receipt Date: 20220421
  Transmission Date: 20220720
  Serious: Yes (Other)
  Sender: FDA-Public Use
  Company Number: 2022A152689

PATIENT
  Sex: Male

DRUGS (1)
  1. IMFINZI [Suspect]
     Active Substance: DURVALUMAB
     Indication: Small cell lung cancer extensive stage
     Route: 042
     Dates: start: 20220304

REACTIONS (1)
  - Pancreatitis [Unknown]
